FAERS Safety Report 8954386 (Version 1)
Quarter: 2012Q4

REPORT INFORMATION
  Report Type: 
  Country: AR (occurrence: AR)
  Receive Date: 20121210
  Receipt Date: 20121210
  Transmission Date: 20130627
  Serious: Yes (Death, Other)
  Sender: FDA-Public Use
  Company Number: PHHY2012AR112529

PATIENT
  Sex: Female

DRUGS (1)
  1. EXFORGE D [Suspect]
     Indication: BLOOD PRESSURE ABNORMAL
     Dosage: 1 DF, per day (160 mg vals, 5 mg amlo, 12.5 mg hctz)
     Route: 048

REACTIONS (4)
  - Cardio-respiratory arrest [Fatal]
  - Pulmonary oedema [Unknown]
  - Dyspnoea [Unknown]
  - Malaise [Unknown]
